FAERS Safety Report 18557931 (Version 2)
Quarter: 2025Q4

REPORT INFORMATION
  Report Type: Report from Study
  Country: US (occurrence: None)
  Receive Date: 20201130
  Receipt Date: 20251129
  Transmission Date: 20260117
  Serious: Yes (Hospitalization)
  Sender: AUROBINDO
  Company Number: US-APOTEX-2014AP004512

PATIENT
  Age: 2 Year
  Sex: Female

DRUGS (2)
  1. LISINOPRIL [Suspect]
     Active Substance: LISINOPRIL
     Indication: Accidental exposure to product by child
     Dosage: UNK
  2. single-dose activated charcoal [Concomitant]
     Indication: Product used for unknown indication
     Dosage: UNK
     Route: 065

REACTIONS (3)
  - Hypotension [Unknown]
  - Somnolence [Unknown]
  - Accidental exposure to product by child [Unknown]
